FAERS Safety Report 4606379-X (Version None)
Quarter: 2005Q2

REPORT INFORMATION
  Report Type: 
  Country: None (occurrence: None)
  Receive Date: 20050303
  Receipt Date: 20050124
  Transmission Date: 20051028
  Serious: No
  Sender: FDA-Public Use
  Company Number: 200510102BWH

PATIENT
  Age: 84 Year
  Sex: Male

DRUGS (1)
  1. LEVITRA [Suspect]
     Dosage: 10 MG ; 15 MG  : TOTAL DAILY, ORAL
     Route: 048

REACTIONS (2)
  - DRUG INEFFECTIVE [None]
  - FLUSHING [None]
